FAERS Safety Report 7615649-2 (Version None)
Quarter: 2011Q3

REPORT INFORMATION
  Report Type: 
  Country: None (occurrence: None)
  Receive Date: 20110715
  Receipt Date: 20110715
  Transmission Date: 20111222
  Serious: Yes (Life-Threatening, Hospitalization, Other)
  Sender: FDA-Public Use
  Company Number: None

PATIENT
  Age: 66 Year
  Sex: Male
  Weight: 83.2 kg

DRUGS (1)
  1. TREANDA [Suspect]
     Indication: SMALL CELL LUNG CANCER STAGE UNSPECIFIED
     Dosage: 232MG DAILY X2 IV
     Route: 042
     Dates: start: 20110707, end: 20110708

REACTIONS (3)
  - PERICARDIAL EFFUSION [None]
  - LOSS OF CONSCIOUSNESS [None]
  - CARDIAC TAMPONADE [None]
